FAERS Safety Report 16156589 (Version 1)
Quarter: 2019Q2

REPORT INFORMATION
  Report Type: Spontaneous
  Country: US (occurrence: US)
  Receive Date: 20190404
  Receipt Date: 20190404
  Transmission Date: 20190711
  Serious: Yes (Other)
  Sender: FDA-Public Use
  Company Number: US-PFIZER INC-2019130555

PATIENT
  Sex: Female

DRUGS (3)
  1. SKELAXIN [Suspect]
     Active Substance: METAXALONE
     Indication: BACK PAIN
     Dosage: 1-2 TABLETS PER YEAR
  2. ASTAXANTHIN BIO LIFE [Concomitant]
     Indication: FIBROMYALGIA
  3. ASTAXANTHIN BIO LIFE [Concomitant]
     Indication: RHEUMATOID ARTHRITIS
     Dosage: UNK

REACTIONS (7)
  - Somnolence [Unknown]
  - Ankle fracture [Unknown]
  - Accident [Unknown]
  - Drug ineffective [Unknown]
  - Temperature intolerance [Unknown]
  - Sleep apnoea syndrome [Unknown]
  - Gastrooesophageal reflux disease [Unknown]
